FAERS Safety Report 11059161 (Version 1)
Quarter: 2015Q2

REPORT INFORMATION
  Report Type: Spontaneous
  Country: US (occurrence: None)
  Receive Date: 20150422
  Receipt Date: 20150422
  Transmission Date: 20150821
  Serious: No
  Sender: FDA-Public Use
  Company Number: None

PATIENT
  Age: 64 Year
  Sex: Male

DRUGS (2)
  1. DAPTOMYCIN. [Suspect]
     Active Substance: DAPTOMYCIN
  2. VANCOMYCIN [Suspect]
     Active Substance: VANCOMYCIN

REACTIONS (2)
  - Rash [None]
  - Renal impairment [None]

NARRATIVE: CASE EVENT DATE: 20150408
